FAERS Safety Report 10581736 (Version 1)
Quarter: 2014Q4

REPORT INFORMATION
  Report Type: Spontaneous
  Country: PT (occurrence: PT)
  Receive Date: 20141113
  Receipt Date: 20141113
  Transmission Date: 20150529
  Serious: Yes (Hospitalization, Other)
  Sender: FDA-Public Use
  Company Number: PT-PAR PHARMACEUTICAL, INC-2014SCPR009483

PATIENT

DRUGS (3)
  1. ANESTHETICS, GENERAL [Concomitant]
     Indication: GENERAL ANAESTHESIA
     Dosage: UNK UNK, UNKNOWN
     Route: 065
  2. ADRENALIN [Suspect]
     Active Substance: EPINEPHRINE
     Dosage: 5 MG, SINGLE
     Route: 042
  3. ATROPINE [Suspect]
     Active Substance: ATROPINE
     Indication: NEUROMUSCULAR BLOCKADE REVERSAL
     Dosage: 1 MG, SINGLE
     Route: 042

REACTIONS (7)
  - Mydriasis [Recovered/Resolved]
  - Cardiac arrest [Recovered/Resolved]
  - Drug administration error [Unknown]
  - Tachycardia [Recovered/Resolved]
  - Pulseless electrical activity [None]
  - Product packaging confusion [None]
  - Hypertension [Recovered/Resolved]
